FAERS Safety Report 22940553 (Version 2)
Quarter: 2023Q4

REPORT INFORMATION
  Report Type: Spontaneous
  Country: US (occurrence: None)
  Receive Date: 20230913
  Receipt Date: 20231004
  Transmission Date: 20240109
  Serious: Yes (Other)
  Sender: FDA-Public Use
  Company Number: US-FARMAPROD-202309-2656

PATIENT
  Age: 70 Year
  Sex: Male

DRUGS (4)
  1. OXERVATE [Suspect]
     Active Substance: CENEGERMIN-BKBJ
     Indication: Neurotrophic keratopathy
     Route: 047
     Dates: start: 20230812
  2. COMBIGAN [Concomitant]
     Active Substance: BRIMONIDINE TARTRATE\TIMOLOL MALEATE
     Dates: end: 20230825
  3. LUMIGAN [Concomitant]
     Active Substance: BIMATOPROST
     Dates: end: 20230825
  4. ZIOPTAN [Concomitant]
     Active Substance: TAFLUPROST
     Dates: start: 20230911

REACTIONS (1)
  - Symblepharon [Not Recovered/Not Resolved]

NARRATIVE: CASE EVENT DATE: 20230822
